FAERS Safety Report 17262006 (Version 1)
Quarter: 2020Q1

REPORT INFORMATION
  Report Type: Spontaneous
  Country: US (occurrence: US)
  Receive Date: 20200113
  Receipt Date: 20200113
  Transmission Date: 20200409
  Serious: No
  Sender: FDA-Public Use
  Company Number: US-FERRINGPH-2019FE07333

PATIENT
  Age: 75 Year
  Sex: Male
  Weight: 92.52 kg

DRUGS (1)
  1. NOCDURNA [Suspect]
     Active Substance: DESMOPRESSIN ACETATE
     Indication: NOCTURIA
     Dosage: UNK
     Route: 060
     Dates: start: 20191104

REACTIONS (2)
  - Intentional dose omission [Recovered/Resolved]
  - Diarrhoea [Recovered/Resolved]

NARRATIVE: CASE EVENT DATE: 20191106
